FAERS Safety Report 5746961-X (Version None)
Quarter: 2008Q2

REPORT INFORMATION
  Report Type: 
  Country: None (occurrence: None)
  Receive Date: 20080522
  Receipt Date: 20080513
  Transmission Date: 20081010
  Serious: Yes (Other)
  Sender: FDA-Public Use
  Company Number: US-WYE-H03175208

PATIENT
  Sex: Male

DRUGS (2)
  1. EFFEXOR XR [Suspect]
     Dosage: 225 MG FREQUENCY UNSPECIFIED
     Dates: start: 20050501, end: 20050523
  2. EFFEXOR XR [Suspect]
     Dosage: 150 MG FREQUENCY UNSPECIFIED
     Dates: start: 20050524

REACTIONS (23)
  - ABNORMAL BEHAVIOUR [None]
  - AFFECT LABILITY [None]
  - AGGRESSION [None]
  - BLOOD PRESSURE INCREASED [None]
  - CONSTIPATION [None]
  - DEPERSONALISATION [None]
  - DRUG WITHDRAWAL SYNDROME [None]
  - DYSKINESIA [None]
  - EJACULATION DELAYED [None]
  - HOMICIDAL IDEATION [None]
  - INTENTIONAL DRUG MISUSE [None]
  - IRRITABILITY [None]
  - MANIA [None]
  - PALPITATIONS [None]
  - PARANOIA [None]
  - PHYSICAL ASSAULT [None]
  - SALIVARY HYPERSECRETION [None]
  - SOCIAL AVOIDANT BEHAVIOUR [None]
  - SPEECH DISORDER [None]
  - SUICIDAL IDEATION [None]
  - SUICIDE ATTEMPT [None]
  - THINKING ABNORMAL [None]
  - VIOLENCE-RELATED SYMPTOM [None]
